FAERS Safety Report 7562651-5 (Version None)
Quarter: 2011Q2

REPORT INFORMATION
  Report Type: 
  Country: None (occurrence: None)
  Receive Date: 20110622
  Receipt Date: 20110608
  Transmission Date: 20111010
  Serious: Yes (Hospitalization)
  Sender: FDA-Public Use
  Company Number: IT-PFIZER INC-2011134989

PATIENT

DRUGS (1)
  1. SUTENT [Suspect]
     Dosage: UNK
     Route: 048

REACTIONS (1)
  - POLYNEUROPATHY [None]
